FAERS Safety Report 5086663-9 (Version None)
Quarter: 2006Q3

REPORT INFORMATION
  Report Type: 
  Country: None (occurrence: None)
  Receive Date: 20060823
  Receipt Date: 20050928
  Transmission Date: 20061208
  Serious: No
  Sender: FDA-Public Use
  Company Number: US-GLAXOSMITHKLINE-A0576240A

PATIENT
  Age: 59 Year
  Sex: Female

DRUGS (2)
  1. MALARONE [Suspect]
     Indication: MALARIA PROPHYLAXIS
     Dosage: 250MG PER DAY
     Route: 048
     Dates: start: 20050825, end: 20050926
  2. NO CONCURRENT MEDICATION [Concomitant]

REACTIONS (1)
  - PHARYNGOLARYNGEAL PAIN [None]
